FAERS Safety Report 6144754-5 (Version None)
Quarter: 2009Q2

REPORT INFORMATION
  Report Type: 
  Country: None (occurrence: None)
  Receive Date: 20090401
  Receipt Date: 20090401
  Transmission Date: 20091009
  Serious: Yes (Disabling)
  Sender: FDA-Public Use
  Company Number: None

PATIENT
  Sex: Female
  Weight: 104.7809 kg

DRUGS (1)
  1. FLUTICASONE PROPIONATE [Suspect]
     Indication: RHINITIS ALLERGIC
     Dosage: 2 SPRAYS BID NASAL
     Route: 045
     Dates: start: 20080601, end: 20090331

REACTIONS (3)
  - EPISTAXIS [None]
  - NASAL CONGESTION [None]
  - NASAL SEPTUM PERFORATION [None]
